FAERS Safety Report 5027742-1 (Version None)
Quarter: 2006Q2

REPORT INFORMATION
  Report Type: 
  Country: None (occurrence: None)
  Receive Date: 20060616
  Receipt Date: 20060606
  Transmission Date: 20061013
  Serious: Yes (Other)
  Sender: FDA-Public Use
  Company Number: IT-JNJFOC-20060602087

PATIENT
  Age: 28 Year
  Sex: Female

DRUGS (2)
  1. REMICADE [Suspect]
     Indication: JUVENILE ARTHRITIS
     Route: 042
  2. ENBREL [Suspect]
     Indication: JUVENILE ARTHRITIS
     Route: 050

REACTIONS (1)
  - THYROID GLAND CANCER [None]
